FAERS Safety Report 4402165-4 (Version None)
Quarter: 2004Q3

REPORT INFORMATION
  Report Type: 
  Country: None (occurrence: None)
  Receive Date: 20040716
  Receipt Date: 20040701
  Transmission Date: 20050211
  Serious: Yes (Congenital Anomaly)
  Sender: FDA-Public Use
  Company Number: 2004-UK-00645UK

PATIENT

DRUGS (3)
  1. VIRAMUNE [Suspect]
     Dosage: IU
     Route: 015
  2. DIDANOSINE (DIDANOSINE) (NR) [Suspect]
     Dosage: 250 MG, DAILY, IU
     Route: 015
  3. ZIDOVUDINE [Suspect]
     Dosage: IU
     Route: 015

REACTIONS (2)
  - DRUG EXPOSURE DURING PREGNANCY [None]
  - FOETAL DISORDER [None]
